FAERS Safety Report 24443905 (Version 2)
Quarter: 2024Q4

REPORT INFORMATION
  Report Type: Report from Study
  Country: US (occurrence: US)
  Receive Date: 20241016
  Receipt Date: 20241017
  Transmission Date: 20250115
  Serious: No
  Sender: ROCHE
  Company Number: US-ROCHE-2521337

PATIENT
  Age: 66 Year
  Sex: Male
  Weight: 98.4 kg

DRUGS (16)
  1. RITUXAN [Suspect]
     Active Substance: RITUXIMAB
     Indication: Guillain-Barre syndrome
     Dosage: THEN EVERY 10 WEEKS, DATE OF TREATMENT-11/JAN/2024, 07/SEP/2023, 18/MAY/2023, 26/JAN/2023, 27/OCT/20
     Route: 041
  2. RITUXAN [Suspect]
     Active Substance: RITUXIMAB
     Indication: Polyneuropathy idiopathic progressive
     Route: 041
  3. RITUXAN [Suspect]
     Active Substance: RITUXIMAB
     Indication: Chronic inflammatory demyelinating polyradiculoneuropathy
     Dosage: DATE OF TREATMENT: 11/JAN/2024
     Route: 041
  4. ELIQUIS [Concomitant]
     Active Substance: APIXABAN
     Route: 048
  5. RYTHMOL [Concomitant]
     Active Substance: PROPAFENONE HYDROCHLORIDE
     Route: 048
  6. CETIRIZINE HYDROCHLORIDE [Concomitant]
     Active Substance: CETIRIZINE HYDROCHLORIDE
     Route: 048
  7. PRINIVIL [Concomitant]
     Active Substance: LISINOPRIL
     Route: 048
  8. PRILOSEC [Concomitant]
     Active Substance: OMEPRAZOLE MAGNESIUM
     Dosage: 1 CAPSULE DAILY BEFORE BREAKFAST
     Route: 048
  9. VITAMIN B COMPLEX [Concomitant]
     Active Substance: CYANOCOBALAMIN\DEXPANTHENOL\NIACINAMIDE\PYRIDOXINE HYDROCHLORIDE\RIBOFLAVIN 5^-PHOSPHATE SODIUM\THIA
     Route: 048
  10. GLUCOSAMINE [Concomitant]
     Active Substance: GLUCOSAMINE
     Route: 048
  11. ASPIRIN [Concomitant]
     Active Substance: ASPIRIN
  12. GLUCOSAMINE [Concomitant]
     Active Substance: GLUCOSAMINE
  13. LISINOPRIL [Concomitant]
     Active Substance: LISINOPRIL
  14. LUTEIN ZEAXANTHIN [Concomitant]
  15. OMEPRAZOLE [Concomitant]
     Active Substance: OMEPRAZOLE
  16. TADALAFIL [Concomitant]
     Active Substance: TADALAFIL

REACTIONS (2)
  - Off label use [Unknown]
  - No adverse event [Unknown]
